FAERS Safety Report 25524556 (Version 1)
Quarter: 2025Q3

REPORT INFORMATION
  Report Type: Spontaneous
  Country: US (occurrence: US)
  Receive Date: 20250707
  Receipt Date: 20250707
  Transmission Date: 20251021
  Serious: No
  Sender: ELI LILLY AND COMPANY
  Company Number: US-ELI_LILLY_AND_COMPANY-US202507003999

PATIENT
  Age: 36 Year
  Sex: Female

DRUGS (48)
  1. MOUNJARO [Suspect]
     Active Substance: TIRZEPATIDE
     Indication: Weight control
     Route: 058
     Dates: start: 2023
  2. MOUNJARO [Suspect]
     Active Substance: TIRZEPATIDE
     Indication: Weight control
     Route: 058
     Dates: start: 2023
  3. MOUNJARO [Suspect]
     Active Substance: TIRZEPATIDE
     Indication: Weight control
     Route: 058
     Dates: start: 2023
  4. MOUNJARO [Suspect]
     Active Substance: TIRZEPATIDE
     Indication: Weight control
     Route: 058
     Dates: start: 2023
  5. MOUNJARO [Suspect]
     Active Substance: TIRZEPATIDE
     Indication: Lipoedema
  6. MOUNJARO [Suspect]
     Active Substance: TIRZEPATIDE
     Indication: Lipoedema
  7. MOUNJARO [Suspect]
     Active Substance: TIRZEPATIDE
     Indication: Lipoedema
  8. MOUNJARO [Suspect]
     Active Substance: TIRZEPATIDE
     Indication: Lipoedema
  9. MOUNJARO [Suspect]
     Active Substance: TIRZEPATIDE
     Indication: Lymphatic disorder
  10. MOUNJARO [Suspect]
     Active Substance: TIRZEPATIDE
     Indication: Lymphatic disorder
  11. MOUNJARO [Suspect]
     Active Substance: TIRZEPATIDE
     Indication: Lymphatic disorder
  12. MOUNJARO [Suspect]
     Active Substance: TIRZEPATIDE
     Indication: Lymphatic disorder
  13. MOUNJARO [Suspect]
     Active Substance: TIRZEPATIDE
     Indication: Cardiovascular disorder
  14. MOUNJARO [Suspect]
     Active Substance: TIRZEPATIDE
     Indication: Cardiovascular disorder
  15. MOUNJARO [Suspect]
     Active Substance: TIRZEPATIDE
     Indication: Cardiovascular disorder
  16. MOUNJARO [Suspect]
     Active Substance: TIRZEPATIDE
     Indication: Cardiovascular disorder
  17. MOUNJARO [Suspect]
     Active Substance: TIRZEPATIDE
     Indication: Weight control
     Route: 058
  18. MOUNJARO [Suspect]
     Active Substance: TIRZEPATIDE
     Indication: Weight control
     Route: 058
  19. MOUNJARO [Suspect]
     Active Substance: TIRZEPATIDE
     Indication: Weight control
     Route: 058
  20. MOUNJARO [Suspect]
     Active Substance: TIRZEPATIDE
     Indication: Weight control
     Route: 058
  21. MOUNJARO [Suspect]
     Active Substance: TIRZEPATIDE
     Indication: Lipoedema
  22. MOUNJARO [Suspect]
     Active Substance: TIRZEPATIDE
     Indication: Lipoedema
  23. MOUNJARO [Suspect]
     Active Substance: TIRZEPATIDE
     Indication: Lipoedema
  24. MOUNJARO [Suspect]
     Active Substance: TIRZEPATIDE
     Indication: Lipoedema
  25. MOUNJARO [Suspect]
     Active Substance: TIRZEPATIDE
     Indication: Lymphatic disorder
  26. MOUNJARO [Suspect]
     Active Substance: TIRZEPATIDE
     Indication: Lymphatic disorder
  27. MOUNJARO [Suspect]
     Active Substance: TIRZEPATIDE
     Indication: Lymphatic disorder
  28. MOUNJARO [Suspect]
     Active Substance: TIRZEPATIDE
     Indication: Lymphatic disorder
  29. MOUNJARO [Suspect]
     Active Substance: TIRZEPATIDE
     Indication: Cardiovascular disorder
  30. MOUNJARO [Suspect]
     Active Substance: TIRZEPATIDE
     Indication: Cardiovascular disorder
  31. MOUNJARO [Suspect]
     Active Substance: TIRZEPATIDE
     Indication: Cardiovascular disorder
  32. MOUNJARO [Suspect]
     Active Substance: TIRZEPATIDE
     Indication: Cardiovascular disorder
  33. MOUNJARO [Suspect]
     Active Substance: TIRZEPATIDE
     Indication: Weight control
     Route: 058
  34. MOUNJARO [Suspect]
     Active Substance: TIRZEPATIDE
     Indication: Weight control
     Route: 058
  35. MOUNJARO [Suspect]
     Active Substance: TIRZEPATIDE
     Indication: Weight control
     Route: 058
  36. MOUNJARO [Suspect]
     Active Substance: TIRZEPATIDE
     Indication: Weight control
     Route: 058
  37. MOUNJARO [Suspect]
     Active Substance: TIRZEPATIDE
     Indication: Lipoedema
  38. MOUNJARO [Suspect]
     Active Substance: TIRZEPATIDE
     Indication: Lipoedema
  39. MOUNJARO [Suspect]
     Active Substance: TIRZEPATIDE
     Indication: Lipoedema
  40. MOUNJARO [Suspect]
     Active Substance: TIRZEPATIDE
     Indication: Lipoedema
  41. MOUNJARO [Suspect]
     Active Substance: TIRZEPATIDE
     Indication: Lymphatic disorder
  42. MOUNJARO [Suspect]
     Active Substance: TIRZEPATIDE
     Indication: Lymphatic disorder
  43. MOUNJARO [Suspect]
     Active Substance: TIRZEPATIDE
     Indication: Lymphatic disorder
  44. MOUNJARO [Suspect]
     Active Substance: TIRZEPATIDE
     Indication: Lymphatic disorder
  45. MOUNJARO [Suspect]
     Active Substance: TIRZEPATIDE
     Indication: Cardiovascular disorder
  46. MOUNJARO [Suspect]
     Active Substance: TIRZEPATIDE
     Indication: Cardiovascular disorder
  47. MOUNJARO [Suspect]
     Active Substance: TIRZEPATIDE
     Indication: Cardiovascular disorder
  48. MOUNJARO [Suspect]
     Active Substance: TIRZEPATIDE
     Indication: Cardiovascular disorder

REACTIONS (3)
  - Off label use [Unknown]
  - Injection site irritation [Recovered/Resolved]
  - Injection site erythema [Recovered/Resolved]

NARRATIVE: CASE EVENT DATE: 20230101
